FAERS Safety Report 15564047 (Version 4)
Quarter: 2019Q2

REPORT INFORMATION
  Report Type: Spontaneous
  Country: KR (occurrence: KR)
  Receive Date: 20181030
  Receipt Date: 20190411
  Transmission Date: 20190711
  Serious: Yes (Hospitalization, Other)
  Sender: FDA-Public Use
  Company Number: KR-009507513-1808KOR005889

PATIENT
  Sex: Female

DRUGS (53)
  1. KEYTRUDA [Suspect]
     Active Substance: PEMBROLIZUMAB
     Dosage: 100 MILLIGRAM
     Route: 042
     Dates: start: 20181211, end: 20181224
  2. KEYTRUDA [Suspect]
     Active Substance: PEMBROLIZUMAB
     Dosage: UNK
     Dates: start: 20190308
  3. CIROK [Concomitant]
     Dosage: QUANTITY 2, DAYS 9
     Dates: start: 20180713, end: 20180723
  4. TYRENOL [Concomitant]
     Dosage: QUANTITY 1, DAYS 1
     Dates: start: 20181104, end: 20181121
  5. ULTRACET [Concomitant]
     Active Substance: ACETAMINOPHEN\TRAMADOL HYDROCHLORIDE
     Dosage: QUANTITY 3, DAYS 8
     Dates: start: 20190219
  6. LACTOBY [Concomitant]
     Dosage: QUANTITY 3, DAYS 1
     Dates: start: 20181104, end: 20181121
  7. SODIUM CHLORIDE. [Concomitant]
     Active Substance: SODIUM CHLORIDE
     Dosage: QUANTITY 1, DAYS 1
     Dates: start: 20190214
  8. KEYTRUDA [Suspect]
     Active Substance: PEMBROLIZUMAB
     Dosage: UNK
     Dates: start: 201808
  9. LYRICA [Concomitant]
     Active Substance: PREGABALIN
     Dosage: QUANTITY 2, DAYS 1
     Dates: start: 20181104, end: 20181121
  10. ULTRACET [Concomitant]
     Active Substance: ACETAMINOPHEN\TRAMADOL HYDROCHLORIDE
     Dosage: QUANTITY 2, DAYS 1
     Dates: start: 20190219
  11. URSA TABLETS [Concomitant]
     Dosage: QUANTITY 3, DAYS 1
     Dates: start: 20181104, end: 20181121
  12. SOLONDO [Concomitant]
     Active Substance: PREDNISOLONE
     Dosage: QUANTITY 4, DAYS 8
     Route: 048
     Dates: start: 20190219
  13. PENIRAMIN [Concomitant]
     Dosage: QUANTITY 1, DAYS 1
     Dates: start: 20190214
  14. PENIRAMIN [Concomitant]
     Dosage: QUANTITY 1, DAYS 1
     Dates: start: 20190306, end: 20190317
  15. KEYTRUDA [Suspect]
     Active Substance: PEMBROLIZUMAB
     Indication: METASTASES TO BLADDER
     Dosage: UNK
     Dates: start: 20180705
  16. KEYTRUDA [Suspect]
     Active Substance: PEMBROLIZUMAB
     Dosage: UNK
     Dates: start: 201808
  17. KEYTRUDA [Suspect]
     Active Substance: PEMBROLIZUMAB
     Dosage: UNK
     Dates: start: 201809
  18. KEYTRUDA [Suspect]
     Active Substance: PEMBROLIZUMAB
     Dosage: UNK
     Dates: start: 20190119
  19. LYRICA [Concomitant]
     Active Substance: PREGABALIN
     Dosage: QUANTITY 2, DAYS 19
     Dates: start: 20180713, end: 20180723
  20. URSA TABLETS [Concomitant]
     Dosage: QUANTITY 3, DAYS 19
     Dates: start: 20180713, end: 20180723
  21. FLASINYL [Concomitant]
     Dosage: QUANTITY 6, DAYS 1
     Dates: start: 20181104, end: 20181121
  22. ABSTRAL [Concomitant]
     Active Substance: FENTANYL CITRATE
     Dosage: QUANTITY 4 DAYS 0
     Dates: start: 20181104, end: 20181121
  23. KEYTRUDA [Suspect]
     Active Substance: PEMBROLIZUMAB
     Dosage: UNK
     Dates: start: 20190214, end: 20190214
  24. NUCYNTA [Concomitant]
     Active Substance: TAPENTADOL HYDROCHLORIDE
     Dosage: QUANTITY 2, DAYS 19
     Dates: start: 20180713, end: 20180723
  25. SUPRAX [Concomitant]
     Active Substance: CEFIXIME
     Dosage: QUANTITY 2 DAYS 1
     Dates: start: 20181104, end: 20181121
  26. KEYTRUDA [Suspect]
     Active Substance: PEMBROLIZUMAB
     Dosage: 100 MILLIGRAM
     Route: 042
     Dates: start: 201811
  27. TYRENOL [Concomitant]
     Dosage: QUANTITY 1, DAYS 1
     Dates: start: 20180713, end: 20180723
  28. URSA TABLETS [Concomitant]
     Dosage: QUANTITY 1 DAYS 1
     Dates: start: 20190121, end: 20190123
  29. SODIUM CHLORIDE. [Concomitant]
     Active Substance: SODIUM CHLORIDE
     Dosage: QUANTITY 1, DAYS 7
     Dates: start: 20190303, end: 20190319
  30. SODIUM CHLORIDE. [Concomitant]
     Active Substance: SODIUM CHLORIDE
     Dosage: QUANTITY 2, DAYS 2
     Dates: start: 20190315, end: 20190319
  31. HEPARIN SODIUM. [Concomitant]
     Active Substance: HEPARIN SODIUM
     Dosage: QUANTITY 1, DAYS 1
     Dates: start: 20190214
  32. PANTOLOC [Concomitant]
     Active Substance: PANTOPRAZOLE SODIUM
     Dosage: QUANTITY 1,DAY 1
     Dates: start: 20181104, end: 20181121
  33. TRANSAMIN [Concomitant]
     Active Substance: TRANEXAMIC ACID
     Dosage: QUANTITY 3, DAYS 9
     Dates: start: 20180713, end: 20180723
  34. ULTRACET [Concomitant]
     Active Substance: ACETAMINOPHEN\TRAMADOL HYDROCHLORIDE
     Dosage: QUANTITY 3, DAYS 19
     Route: 048
     Dates: start: 20180713, end: 20180723
  35. LACTOBY [Concomitant]
     Dosage: QUANTITY 3, DAYS 8
     Dates: start: 20190219
  36. TARGIN [Concomitant]
     Active Substance: NALOXONE HYDROCHLORIDE\OXYCODONE HYDROCHLORIDE
     Dosage: QUANTITY 2 DAYS 1
     Dates: start: 20181104, end: 20181121
  37. SODIUM CHLORIDE. [Concomitant]
     Active Substance: SODIUM CHLORIDE
     Dosage: QUANTITY 1, DAYS 1
     Dates: start: 20190214
  38. SODIUM CHLORIDE. [Concomitant]
     Active Substance: SODIUM CHLORIDE
     Dosage: QUANTITY 1, DAYS 1
     Dates: start: 20190214
  39. PANTOLOC [Concomitant]
     Active Substance: PANTOPRAZOLE SODIUM
     Dosage: QUANTITY 1, DAYS 9
     Dates: start: 20180713, end: 20180723
  40. FLASINYL [Concomitant]
     Dosage: QUANTITY 6, DAYS 21
     Dates: start: 20181104, end: 20181121
  41. IRCODON [Concomitant]
     Active Substance: OXYCODONE HYDROCHLORIDE
     Dosage: QUANTITY 3, DAYS 21
     Dates: start: 20181104, end: 20181121
  42. LACTOBY [Concomitant]
     Dosage: QUANTITY 2, DAYS 1
     Dates: start: 20190219
  43. SODIUM CHLORIDE. [Concomitant]
     Active Substance: SODIUM CHLORIDE
     Dosage: QUANTITY 1, DAYS 1
     Dates: start: 20190308, end: 20190308
  44. KEYTRUDA [Suspect]
     Active Substance: PEMBROLIZUMAB
     Indication: CERVIX CARCINOMA
     Dosage: UNK
     Dates: start: 201805
  45. KEYTRUDA [Suspect]
     Active Substance: PEMBROLIZUMAB
     Dosage: UNK
     Dates: start: 201807
  46. KEYTRUDA [Suspect]
     Active Substance: PEMBROLIZUMAB
     Dosage: UNK
     Dates: start: 201809
  47. KEYTRUDA [Suspect]
     Active Substance: PEMBROLIZUMAB
     Dosage: 100 MILLIGRAM
     Route: 042
     Dates: start: 201810
  48. GODEX (ADENINE HYDROCHLORIDE (+) BIFENDATE (+) CARNITINE OROTATE (+) [Concomitant]
     Dosage: QUANTITY 3, DAYS 19
     Dates: start: 20180713, end: 20180723
  49. ULTRACET [Concomitant]
     Active Substance: ACETAMINOPHEN\TRAMADOL HYDROCHLORIDE
     Dosage: QUANTITY 3, DAYS 1
     Route: 048
     Dates: start: 20181104, end: 20181121
  50. MAGMIL [Concomitant]
     Active Substance: MAGNESIUM HYDROXIDE
     Dosage: QUANTITY 2, DAYS 1
     Dates: start: 20181104, end: 20181121
  51. TYLENOL [Concomitant]
     Active Substance: ACETAMINOPHEN
     Dosage: QUANTITY 1, DAYS 1
     Dates: start: 20181104, end: 20181121
  52. SODIUM CHLORIDE. [Concomitant]
     Active Substance: SODIUM CHLORIDE
     Dosage: QUANTITY 1, DAYS 1
     Dates: start: 20190308, end: 20190308
  53. SODIUM CHLORIDE. [Concomitant]
     Active Substance: SODIUM CHLORIDE
     Dosage: QUANTITY 3, DAYS 3
     Dates: start: 20190316, end: 20190318

REACTIONS (4)
  - Adverse event [Unknown]
  - Product use in unapproved indication [Unknown]
  - Adverse event [Unknown]
  - Transfusion [Unknown]

NARRATIVE: CASE EVENT DATE: 2018
